FAERS Safety Report 11624633 (Version 1)
Quarter: 2015Q4

REPORT INFORMATION
  Report Type: Spontaneous
  Country: US (occurrence: US)
  Receive Date: 20151013
  Receipt Date: 20151013
  Transmission Date: 20160304
  Serious: Yes (Other)
  Sender: FDA-Public Use
  Company Number: US-SUN PHARMACEUTICAL INDUSTRIES LTD-2015US-104324

PATIENT
  Age: 31 Year
  Sex: Female

DRUGS (1)
  1. OXYMORPHONE [Suspect]
     Active Substance: OXYMORPHONE
     Indication: PRODUCT USED FOR UNKNOWN INDICATION
     Dosage: UNK
     Route: 042

REACTIONS (7)
  - Malignant atrophic papulosis [Recovered/Resolved]
  - Drug abuse [Unknown]
  - Respiratory failure [Recovered/Resolved]
  - Renal failure [Recovered/Resolved]
  - Multi-organ failure [Recovered/Resolved]
  - Skin ulcer [Unknown]
  - Thrombotic microangiopathy [Recovered/Resolved]
